FAERS Safety Report 9094335 (Version 1)
Quarter: 2013Q1

REPORT INFORMATION
  Report Type: Spontaneous
  Country: US (occurrence: US)
  Receive Date: 20130219
  Receipt Date: 20130219
  Transmission Date: 20140127
  Serious: Yes (Hospitalization)
  Sender: FDA-Public Use
  Company Number: US-SANOFI-AVENTIS-2013SA013633

PATIENT
  Age: 54 Year
  Sex: Female
  Weight: 104.33 kg

DRUGS (4)
  1. LASIX [Suspect]
     Indication: FLUID OVERLOAD
     Route: 048
     Dates: start: 20110105, end: 20110126
  2. LASIX [Suspect]
     Indication: FLUID OVERLOAD
     Route: 048
     Dates: start: 20110202
  3. BLINDED THERAPY [Suspect]
     Indication: OSTEOARTHRITIS
     Dates: start: 20101026, end: 20110125
  4. ESOMEPRAZOLE [Concomitant]
     Indication: PROPHYLAXIS
     Route: 048
     Dates: start: 20101026, end: 20110125

REACTIONS (1)
  - Renal failure acute [Recovered/Resolved]
